FAERS Safety Report 4429080-4 (Version None)
Quarter: 2004Q3

REPORT INFORMATION
  Report Type: 
  Country: None (occurrence: None)
  Receive Date: 20040726
  Receipt Date: 20040311
  Transmission Date: 20050211
  Serious: No
  Sender: FDA-Public Use
  Company Number: USA040361763

PATIENT
  Age: 71 Year
  Sex: Male

DRUGS (9)
  1. FORTEO [Suspect]
     Indication: OSTEOPOROSIS
     Dosage: 20 UG DAY
     Dates: start: 20040305
  2. ZOCOR [Concomitant]
  3. METOPROLOL [Concomitant]
  4. NIFEDIPINE [Concomitant]
  5. TERAZOSIN HCL [Concomitant]
  6. LASIX [Concomitant]
  7. POTASSIUM [Concomitant]
  8. HYDROCODONE [Concomitant]
  9. IRON [Concomitant]

REACTIONS (2)
  - CONSTIPATION [None]
  - HAEMATOCHEZIA [None]
